FAERS Safety Report 10162714 (Version 4)
Quarter: 2015Q1

REPORT INFORMATION
  Report Type: Spontaneous
  Country: US (occurrence: US)
  Receive Date: 20140509
  Receipt Date: 20150330
  Transmission Date: 20150720
  Serious: No
  Sender: FDA-Public Use
  Company Number: US-BAYER-2014-067132

PATIENT
  Age: 37 Year
  Sex: Female
  Weight: 66.71 kg

DRUGS (1)
  1. MIRENA [Suspect]
     Active Substance: LEVONORGESTREL
     Indication: CONTRACEPTION
     Dosage: 20 MCG/24HR, CONT
     Route: 015
     Dates: start: 20121121, end: 20140414

REACTIONS (4)
  - Treatment noncompliance [None]
  - Menstruation delayed [None]
  - Drug ineffective [None]
  - Pregnancy [None]

NARRATIVE: CASE EVENT DATE: 201403
